FAERS Safety Report 7548767-8 (Version None)
Quarter: 2011Q2

REPORT INFORMATION
  Report Type: 
  Country: None (occurrence: None)
  Receive Date: 20110615
  Receipt Date: 20110613
  Transmission Date: 20111010
  Serious: Yes (Other)
  Sender: FDA-Public Use
  Company Number: JP-PFIZER INC-2011129015

PATIENT
  Age: 67 Year
  Sex: Male

DRUGS (7)
  1. ASPIRIN [Concomitant]
     Dosage: UNK
  2. LASIX [Concomitant]
     Dosage: 10MG/DAY
  3. NOVORAPID [Concomitant]
     Dosage: UNK
  4. PLAVIX [Concomitant]
     Dosage: UNK
  5. INSULIN DETEMIR [Concomitant]
     Dosage: UNK
  6. LYRICA [Suspect]
     Dosage: UNK
     Route: 048
     Dates: start: 20110525, end: 20110604
  7. IRBESARTAN [Concomitant]
     Dosage: UNK

REACTIONS (2)
  - BLOOD CREATININE INCREASED [None]
  - OEDEMA [None]
